FAERS Safety Report 4900356-7 (Version None)
Quarter: 2006Q1

REPORT INFORMATION
  Report Type: 
  Country: None (occurrence: None)
  Receive Date: 20060203
  Receipt Date: 20060201
  Transmission Date: 20060701
  Serious: Yes (Death)
  Sender: FDA-Public Use
  Company Number: DE-GLAXOSMITHKLINE-D0048647A

PATIENT
  Age: 80 Year
  Sex: Male
  Weight: 60 kg

DRUGS (2)
  1. AVANDAMET [Suspect]
     Dosage: 502MG PER DAY
     Route: 048
     Dates: start: 20040810
  2. MULTIPLE DRUG THERAPY [Concomitant]
     Route: 065

REACTIONS (1)
  - DEATH [None]
